FAERS Safety Report 10173347 (Version 1)
Quarter: 2014Q2

REPORT INFORMATION
  Report Type: Spontaneous
  Country: US (occurrence: None)
  Receive Date: 20140416
  Receipt Date: 20140416
  Transmission Date: 20141212
  Serious: No
  Sender: FDA-Public Use
  Company Number: 163-POMAL-14021382

PATIENT
  Sex: Male

DRUGS (18)
  1. POMALYST (POMALIDOMIDE) (1 MILLIGRAM, CAPSULES) [Suspect]
     Indication: MYELOFIBROSIS
     Route: 048
     Dates: start: 201303
  2. FISH OIL (FISH OIL) [Concomitant]
  3. FLAXSEED OIL (LINSEED OIL) [Concomitant]
  4. MULTIVITAMIN (MULTIVITAMINS) [Concomitant]
  5. OCUVITE (OCUVITE) [Concomitant]
  6. CLODERM (CLOCORTOLONE PIVALATE) [Concomitant]
  7. ORACEA (DOXYCYCLINE) [Concomitant]
  8. METRONIDAZOLE (METRONIDAZOLE) [Concomitant]
  9. LEVOFLOXACIN (LEVOFLOXACIN) [Concomitant]
  10. NEXIUM (ESOMEPRAZOLE) [Concomitant]
  11. TERAZOSIN HCL (TERAZOSIN HYDROCHLORIDE) [Concomitant]
  12. CLOPIDOGREL (CLOPIDOGREL) [Concomitant]
  13. FOLBIC (HEPAGRISEVIT FORTE-N TABLET) [Concomitant]
  14. RAMIPRIL (RAMIPRIL) [Concomitant]
  15. CARVEDILOL (CARVEDILOL) [Concomitant]
  16. VYTORIN (INEGY) [Concomitant]
  17. FINASTERIDE (FINASTERIDE) [Concomitant]
  18. AMOXICILLIN (AMOXICILLIN) [Concomitant]

REACTIONS (2)
  - Acne [None]
  - Urinary tract infection [None]
